FAERS Safety Report 7785733-1 (Version None)
Quarter: 2011Q3

REPORT INFORMATION
  Report Type: 
  Country: None (occurrence: None)
  Receive Date: 20110929
  Receipt Date: 20110921
  Transmission Date: 20111222
  Serious: Yes (Hospitalization)
  Sender: FDA-Public Use
  Company Number: US-ASTELLAS-2011US006125

PATIENT
  Sex: Female

DRUGS (3)
  1. MYCOPHENOLATE MOFETIL (CELLCEPT) [Concomitant]
     Indication: RENAL TRANSPLANT
     Dosage: 500 MG, TID
     Route: 048
  2. PROGRAF [Suspect]
     Indication: RENAL TRANSPLANT
     Dosage: 5 MG, BID
     Route: 048
  3. PREDNISONE [Concomitant]
     Indication: RENAL TRANSPLANT
     Dosage: 7.5 MG, UID/QD
     Route: 048

REACTIONS (1)
  - STRESS [None]
